FAERS Safety Report 5786124-5 (Version None)
Quarter: 2008Q2

REPORT INFORMATION
  Report Type: 
  Country: None (occurrence: None)
  Receive Date: 20080624
  Receipt Date: 20080619
  Transmission Date: 20081010
  Serious: Yes (Life-Threatening, Hospitalization)
  Sender: FDA-Public Use
  Company Number: DE-ASTRAZENECA-2008AC01556

PATIENT
  Age: 59 Year
  Sex: Female
  Weight: 129 kg

DRUGS (3)
  1. QUETIAPINE FUMARATE [Suspect]
     Indication: SCHIZOAFFECTIVE DISORDER
     Route: 048
  2. QUETIAPINE FUMARATE [Interacting]
     Indication: MANIA
     Route: 048
  3. LORAZEPAM [Interacting]
     Indication: MANIA

REACTIONS (3)
  - DRUG INTERACTION [None]
  - LOSS OF CONSCIOUSNESS [None]
  - RESPIRATORY FAILURE [None]
